FAERS Safety Report 7161301-X (Version None)
Quarter: 2010Q4

REPORT INFORMATION
  Report Type: 
  Country: None (occurrence: None)
  Receive Date: 20101210
  Receipt Date: 20101210
  Transmission Date: 20110411
  Serious: Yes (Life-Threatening)
  Sender: FDA-Public Use
  Company Number: None

PATIENT
  Age: 79 Year
  Sex: Male
  Weight: 76.7 kg

DRUGS (1)
  1. HEPARIN [Suspect]
     Dosage: 15.3 ML PER HOUR IV
     Route: 042
     Dates: start: 20100426, end: 20100428

REACTIONS (1)
  - RETROPERITONEAL HAEMATOMA [None]
